FAERS Safety Report 20727638 (Version 1)
Quarter: 2022Q2

REPORT INFORMATION
  Report Type: Other
  Country: US (occurrence: None)
  Receive Date: 20220419
  Receipt Date: 20220419
  Transmission Date: 20220721
  Serious: No
  Sender: FDA-Public Use
  Company Number: US-ROCHE-2963305

PATIENT
  Age: 52 Year
  Sex: Female

DRUGS (10)
  1. BEVACIZUMAB [Suspect]
     Active Substance: BEVACIZUMAB
     Indication: Open angle glaucoma
     Route: 021
  2. PREDNISOLONE ACETATE [Concomitant]
     Active Substance: PREDNISOLONE ACETATE
     Indication: Anterior chamber inflammation
  3. CYCLOPENTOLATE [Concomitant]
     Active Substance: CYCLOPENTOLATE
     Indication: Anterior chamber inflammation
  4. FLUOROURACIL [Concomitant]
     Active Substance: FLUOROURACIL
     Indication: Open angle glaucoma
     Route: 021
  5. ACETAZOLAMIDE [Concomitant]
     Active Substance: ACETAZOLAMIDE
     Indication: Open angle glaucoma
  6. ACETAZOLAMIDE [Concomitant]
     Active Substance: ACETAZOLAMIDE
  7. KENALOG [Concomitant]
     Active Substance: TRIAMCINOLONE ACETONIDE
  8. BRIMONIDINE;BRINZOLAMIDE [Concomitant]
     Indication: Hypertension
  9. TIMOLOL [Concomitant]
     Active Substance: TIMOLOL
     Indication: Hypertension
  10. LATANOPROST;NETARSUDIL MESILATE [Concomitant]

REACTIONS (3)
  - Off label use [Unknown]
  - Off label use [Unknown]
  - No adverse event [Unknown]
